FAERS Safety Report 8826035 (Version 1)
Quarter: 2012Q4

REPORT INFORMATION
  Report Type: 
  Country: US (occurrence: US)
  Receive Date: 20121005
  Receipt Date: 20121005
  Transmission Date: 20130627
  Serious: Yes (Other)
  Sender: FDA-Public Use
  Company Number: US-ROCHE-1134101

PATIENT
  Sex: Female

DRUGS (1)
  1. RITUXAN [Suspect]
     Indication: THROMBOCYTOPENIA
     Route: 065

REACTIONS (1)
  - Platelet count decreased [Unknown]
